FAERS Safety Report 10251018 (Version 2)
Quarter: 2014Q2

REPORT INFORMATION
  Report Type: Report from Study
  Country: PL (occurrence: PL)
  Receive Date: 20140620
  Receipt Date: 20140620
  Transmission Date: 20141212
  Serious: Yes (Hospitalization)
  Sender: FDA-Public Use
  Company Number: PL-BAYER-2014-071921

PATIENT
  Age: 54 Year
  Sex: Female
  Weight: 61 kg

DRUGS (16)
  1. SORAFENIB (RAF KINASE INHIBITOR) [Suspect]
     Indication: THYROID CANCER
     Dosage: UNK
     Route: 048
     Dates: start: 20110714
  2. SORAFENIB (RAF KINASE INHIBITOR) [Suspect]
     Indication: THYROID CANCER
     Dosage: ^200 MG BID+ 200 MG QD^
     Route: 048
     Dates: start: 20140402, end: 20140513
  3. SORAFENIB (RAF KINASE INHIBITOR) [Suspect]
     Indication: THYROID CANCER
     Dosage: ^200 MG BID+ 200 MG QD^
     Route: 048
     Dates: start: 20140402, end: 20140513
  4. PLACEBO (14295) [Suspect]
     Indication: THYROID CANCER METASTATIC
     Dosage: UNK
     Route: 048
     Dates: start: 20101104, end: 20110713
  5. EUTHYROX [Concomitant]
     Indication: POST PROCEDURAL HYPOTHYROIDISM
     Dosage: 150 UG/DAY
     Dates: start: 2003
  6. PANCREATIN [Concomitant]
     Indication: AMYLASE INCREASED
     Dosage: WITH THE MEALS
     Dates: start: 2008, end: 20101014
  7. PANCREATIN [Concomitant]
     Indication: DECREASED APPETITE
  8. LOSARTAN POTASSIUM W/HYDROCHLOROTHIAZIDE [Concomitant]
     Indication: HYPERTENSION
     Dosage: 62.5 MG/DAY
     Dates: start: 20110928
  9. ALFADIOL [Concomitant]
     Indication: OSTEOPOROSIS PROPHYLAXIS
     Dosage: UNK
     Dates: start: 2005, end: 20140505
  10. ASPARGIN [ASPARTIC ACID,MAGNESIUM ASPARTATE] [Concomitant]
     Indication: BLOOD URIC ACID INCREASED
     Dosage: UNK
     Dates: start: 2006, end: 20140508
  11. NEBIVOLOL HYDROCHLORIDE [Concomitant]
     Indication: PROPHYLAXIS
     Dosage: UNK
     Dates: start: 2005
  12. NACL [Concomitant]
     Indication: FLUID REPLACEMENT
     Dosage: 500 ML-1500 ML
     Dates: start: 20140505
  13. GLUCOSUM [Concomitant]
     Indication: NUTRITIONAL SUPPLEMENTATION
     Dosage: DAILY DOSE 500 ML
     Dates: start: 20140509
  14. ESTROFEM [ESTRADIOL] [Concomitant]
     Indication: HORMONE REPLACEMENT THERAPY
     Dosage: UNK
     Dates: start: 20140118, end: 20140512
  15. RELANIUM [CHLORDIAZEPOXIDE HYDROCHLORIDE] [Concomitant]
     Dosage: DAILY DOSE 5 MG
     Dates: start: 20140509
  16. CALPEROS [CALCIUM] [Concomitant]
     Indication: MINERAL SUPPLEMENTATION
     Dosage: DAILY DOSE 1000 MG
     Dates: start: 20140505, end: 20140506

REACTIONS (1)
  - Laboratory test abnormal [Recovered/Resolved]
